FAERS Safety Report 15315377 (Version 2)
Quarter: 2019Q1

REPORT INFORMATION
  Report Type: Report from Study
  Country: IT (occurrence: IT)
  Receive Date: 20180824
  Receipt Date: 20190114
  Transmission Date: 20190417
  Serious: Yes (Life-Threatening)
  Sender: FDA-Public Use
  Company Number: IT-JNJFOC-20180822238

PATIENT
  Age: 75 Year
  Sex: Male

DRUGS (5)
  1. SILODYX [Concomitant]
     Active Substance: SILODOSIN
     Route: 065
  2. FUROSEMIDE. [Concomitant]
     Active Substance: FUROSEMIDE
     Route: 065
  3. DOXAZOSIN [Concomitant]
     Active Substance: DOXAZOSIN\DOXAZOSIN MESYLATE
     Route: 048
  4. ZOFENOPRIL [Concomitant]
     Active Substance: ZOFENOPRIL
     Dosage: 1 TABLET DIE
     Route: 065
  5. IMBRUVICA [Suspect]
     Active Substance: IBRUTINIB
     Indication: CHRONIC LYMPHOCYTIC LEUKAEMIA
     Route: 048
     Dates: start: 20180624, end: 20180816

REACTIONS (2)
  - Pneumonia [Not Recovered/Not Resolved]
  - West Nile viral infection [Not Recovered/Not Resolved]

NARRATIVE: CASE EVENT DATE: 20180811
